FAERS Safety Report 23510371 (Version 2)
Quarter: 2024Q2

REPORT INFORMATION
  Report Type: Report from Study
  Country: US (occurrence: US)
  Receive Date: 20240211
  Receipt Date: 20240409
  Transmission Date: 20240716
  Serious: Yes (Other)
  Sender: FDA-Public Use
  Company Number: US-ABBVIE-5628208

PATIENT
  Age: 60 Year
  Sex: Female

DRUGS (1)
  1. SKYRIZI [Suspect]
     Active Substance: RISANKIZUMAB-RZAA
     Indication: Crohn^s disease
     Route: 058
     Dates: start: 20230403

REACTIONS (6)
  - Abdominal operation [Not Recovered/Not Resolved]
  - Gastrointestinal wall thickening [Unknown]
  - Diarrhoea [Not Recovered/Not Resolved]
  - Intestinal resection [Not Recovered/Not Resolved]
  - Pain [Not Recovered/Not Resolved]
  - Colitis [Unknown]

NARRATIVE: CASE EVENT DATE: 20240401
